FAERS Safety Report 8841810 (Version 1)
Quarter: 2012Q4

REPORT INFORMATION
  Report Type: 
  Country: US (occurrence: US)
  Receive Date: 20121016
  Receipt Date: 20121016
  Transmission Date: 20130627
  Serious: No
  Sender: FDA-Public Use
  Company Number: US-009507513-1210USA000261

PATIENT
  Sex: Male

DRUGS (2)
  1. AZASITE [Suspect]
     Dosage: 1 drop, bid
     Route: 047
  2. AZASITE [Suspect]
     Dosage: 1 drop, qd
     Route: 047

REACTIONS (3)
  - Wrong technique in drug usage process [Unknown]
  - No adverse event [Unknown]
  - Product quality issue [Unknown]
